FAERS Safety Report 4274360-9 (Version None)
Quarter: 2004Q1

REPORT INFORMATION
  Report Type: 
  Country: None (occurrence: None)
  Receive Date: 20040115
  Receipt Date: 20021231
  Transmission Date: 20041129
  Serious: Yes (Hospitalization)
  Sender: FDA-Public Use
  Company Number: 7052

PATIENT
  Age: 54 Year
  Sex: Female

DRUGS (9)
  1. METOCLOPRAMIDE [Suspect]
     Indication: NAUSEA
     Dosage: 10 MG FREQ, PO
     Route: 048
     Dates: start: 20031112, end: 20031113
  2. ALLOPURINOL [Suspect]
     Indication: GOUT
     Dosage: 300 MG FREQ, PO
     Route: 048
     Dates: start: 20031112, end: 20021114
  3. ALLOPURINOL [Suspect]
     Indication: PROPHYLAXIS
     Dosage: 300 MG FREQ, PO
     Route: 048
     Dates: start: 20031112, end: 20021114
  4. LANSOPRAZOLE [Suspect]
     Indication: PROPHYLAXIS
     Dosage: 30 MG FREQ, PO
     Route: 048
     Dates: start: 20031112, end: 20021114
  5. COTRIM [Suspect]
     Indication: PROPHYLAXIS
     Dosage: 960 MG BID, PO
     Route: 048
     Dates: start: 20021112, end: 20021114
  6. FLUCONAZOLE [Suspect]
     Indication: PROPHYLAXIS
     Dosage: 50 MG, PO
     Route: 048
     Dates: start: 20021112, end: 20021114
  7. FLUDARABINE PHOSPHATE [Concomitant]
  8. DEXAMETHASONE [Concomitant]
  9. METOCLOPRAMIDE [Concomitant]

REACTIONS (4)
  - FLUSHING [None]
  - OEDEMA PERIPHERAL [None]
  - PYREXIA [None]
  - RASH ERYTHEMATOUS [None]
